FAERS Safety Report 4738218-0 (Version None)
Quarter: 2005Q3

REPORT INFORMATION
  Report Type: 
  Country: None (occurrence: None)
  Receive Date: 20050729
  Receipt Date: 20050601
  Transmission Date: 20060218
  Serious: No
  Sender: FDA-Public Use
  Company Number: CART-10420

PATIENT
  Age: 40 Year
  Sex: Male

DRUGS (1)
  1. CARTICEL [Suspect]
     Indication: ARTHROPATHY
     Dosage: 1 NA ONCE IS
     Dates: start: 19951228, end: 19951228

REACTIONS (4)
  - CARTILAGE GRAFT [None]
  - GRAFT COMPLICATION [None]
  - GRAFT DELAMINATION [None]
  - HYPERTROPHY [None]
